FAERS Safety Report 16644564 (Version 2)
Quarter: 2020Q3

REPORT INFORMATION
  Report Type: Spontaneous
  Country: CN (occurrence: CN)
  Receive Date: 20190729
  Receipt Date: 20200701
  Transmission Date: 20201102
  Serious: Yes (Hospitalization)
  Sender: FDA-Public Use
  Company Number: CN-PFIZER INC-2019318044

PATIENT
  Age: 61 Year
  Sex: Female
  Weight: 51 kg

DRUGS (3)
  1. PHARMORUBICIN [Suspect]
     Active Substance: EPIRUBICIN
     Indication: NEOPLASM MALIGNANT
     Dosage: 100 MG, 1X/DAY
     Route: 041
     Dates: start: 20190709, end: 20190709
  2. ENDOXAN [CYCLOPHOSPHAMIDE] [Suspect]
     Active Substance: CYCLOPHOSPHAMIDE
     Indication: NEOPLASM MALIGNANT
     Dosage: 0.7 G, 1X/DAY
     Route: 041
     Dates: start: 20190709, end: 20190709
  3. TAXOTERE [Suspect]
     Active Substance: DOCETAXEL
     Indication: NEOPLASM MALIGNANT
     Dosage: 100 MG, 1X/DAY
     Route: 041
     Dates: start: 20190709, end: 20190709

REACTIONS (1)
  - Myelosuppression [Recovering/Resolving]

NARRATIVE: CASE EVENT DATE: 20190717
